FAERS Safety Report 10436445 (Version 2)
Quarter: 2014Q4

REPORT INFORMATION
  Report Type: Spontaneous
  Country: SE (occurrence: SE)
  Receive Date: 20140908
  Receipt Date: 20141107
  Transmission Date: 20150528
  Serious: Yes (Other)
  Sender: FDA-Public Use
  Company Number: SE-ASTELLAS-2014US011814

PATIENT
  Age: 72 Year
  Sex: Female

DRUGS (1)
  1. TARCEVA [Suspect]
     Active Substance: ERLOTINIB HYDROCHLORIDE
     Indication: LUNG NEOPLASM MALIGNANT
     Dosage: UNK, UNKNOWN FREQ.
     Route: 065

REACTIONS (7)
  - Eczema [Unknown]
  - Mass [Unknown]
  - Erysipelas [Unknown]
  - Hepatic enzyme increased [Unknown]
  - Fracture [Unknown]
  - Hair texture abnormal [Unknown]
  - Onychomycosis [Unknown]

NARRATIVE: CASE EVENT DATE: 2014
